FAERS Safety Report 7278236-4 (Version None)
Quarter: 2011Q1

REPORT INFORMATION
  Report Type: 
  Country: None (occurrence: None)
  Receive Date: 20110207
  Receipt Date: 20110203
  Transmission Date: 20110831
  Serious: Yes (Death, Other)
  Sender: FDA-Public Use
  Company Number: FR-GENZYME-FLUD-1000674

PATIENT
  Age: 34 Year
  Sex: Male

DRUGS (4)
  1. LYMPHOCYTE INFUSION [Suspect]
     Indication: HODGKIN'S DISEASE
     Dosage: 2.7 X 10E7 CD3/KG
     Route: 042
  2. FLUDARA [Suspect]
     Indication: HODGKIN'S DISEASE
     Dosage: 30 MG/M2, QD ON DAYS -5,-4,-3 AND -2
     Route: 042
  3. FILGRASTIM [Concomitant]
     Indication: NEUTROPENIA
     Dosage: 5 UG/KG, QD FROM DAY +2
     Route: 065
  4. CYCLOPHOSPHAMIDE [Suspect]
     Indication: HODGKIN'S DISEASE
     Dosage: 1 G/M2, ONCE ON DAY -5
     Route: 042

REACTIONS (4)
  - LYMPHOPENIA [None]
  - DISEASE PROGRESSION [None]
  - NEUTROPENIA [None]
  - ACUTE GRAFT VERSUS HOST DISEASE IN SKIN [None]
